FAERS Safety Report 9613073 (Version 1)
Quarter: 2013Q4

REPORT INFORMATION
  Report Type: Report from Study
  Country: PL (occurrence: PL)
  Receive Date: 20131010
  Receipt Date: 20131010
  Transmission Date: 20140711
  Serious: Yes (Death, Life-Threatening, Hospitalization, Disabling, Other)
  Sender: FDA-Public Use
  Company Number: PHHO2013PL013086

PATIENT
  Sex: 0

DRUGS (4)
  1. AFINITOR [Suspect]
     Indication: BREAST CANCER METASTATIC
     Dosage: 5 MG, BID
     Route: 048
     Dates: start: 20130820, end: 20131004
  2. EXEMESTANE [Suspect]
     Indication: BREAST CANCER METASTATIC
     Dosage: 25 MG, DAILY
     Route: 048
     Dates: start: 20130820, end: 20131004
  3. SERTRALINE [Concomitant]
     Indication: DEPRESSION
     Dosage: 50 MG, UNK
     Route: 048
     Dates: end: 20131004
  4. ACIDUM PANIDRONICUM [Concomitant]
     Indication: METASTASES TO BONE
     Dosage: 90 MG, UNK
     Route: 042
     Dates: start: 201211, end: 20130718

REACTIONS (9)
  - Interstitial lung disease [Fatal]
  - Dyspnoea at rest [Fatal]
  - Respiratory failure [Fatal]
  - Pyrexia [Not Recovered/Not Resolved]
  - Respiratory alkalosis [Not Recovered/Not Resolved]
  - Tachypnoea [Not Recovered/Not Resolved]
  - Anaemia [Not Recovered/Not Resolved]
  - Leukopenia [Not Recovered/Not Resolved]
  - Hypokalaemia [Not Recovered/Not Resolved]
